FAERS Safety Report 7137763 (Version 4)
Quarter: 2012Q4

REPORT INFORMATION
  Report Type: 
  Country: US (occurrence: US)
  Receive Date: 20091002
  Receipt Date: 20121226
  Transmission Date: 20130627
  Serious: Yes (Other)
  Sender: FDA-Public Use
  Company Number: US-ASTRAZENECA-2009UW05963

PATIENT
  Age: 61 Year
  Sex: Female

DRUGS (15)
  1. ARIMIDEX [Suspect]
     Indication: BREAST CANCER
     Route: 048
     Dates: start: 20090220
  2. ARIMIDEX [Suspect]
     Indication: BREAST CANCER
     Dosage: EVERY MORNING
     Route: 048
  3. ARIMIDEX [Suspect]
     Indication: BREAST CANCER
     Dosage: TAKING AT 2 P.M, EVERY DAY
     Route: 048
  4. METOPROLOL [Concomitant]
  5. ASPIRIN [Concomitant]
  6. BETA BLOCKERS [Concomitant]
  7. SIMVASTATIN [Concomitant]
  8. STATIN [Concomitant]
  9. CENTRUM SILVER MULTI VITAMIN [Concomitant]
  10. CITRACAL [Concomitant]
  11. OMEPRAZOLE [Concomitant]
  12. POTASSIUM [Concomitant]
  13. SUCRALFATE [Concomitant]
  14. VITAMIN D [Concomitant]
  15. ZOCOR [Concomitant]

REACTIONS (19)
  - Atrioventricular block second degree [Unknown]
  - Coronary artery occlusion [Unknown]
  - Heart valve incompetence [Unknown]
  - Dyspnoea [Unknown]
  - Chills [Unknown]
  - Constipation [Unknown]
  - Cardiomegaly [Unknown]
  - Intracardiac mass [Unknown]
  - Heart rate decreased [Unknown]
  - Red blood cell count decreased [Unknown]
  - Insomnia [Recovered/Resolved]
  - Erosive oesophagitis [Unknown]
  - Renal cyst [Unknown]
  - Urine output decreased [Unknown]
  - Abnormal weight gain [Unknown]
  - Alopecia [Unknown]
  - Hot flush [Unknown]
  - Blood cholesterol increased [Unknown]
  - Osteopenia [Unknown]
